FAERS Safety Report 16682335 (Version 2)
Quarter: 2019Q4

REPORT INFORMATION
  Report Type: Spontaneous
  Country: DE (occurrence: DE)
  Receive Date: 20190808
  Receipt Date: 20191004
  Transmission Date: 20200122
  Serious: Yes (Hospitalization, Other)
  Sender: FDA-Public Use
  Company Number: DE-PFIZER INC-2019335733

PATIENT
  Age: 53 Year
  Sex: Female
  Weight: 70 kg

DRUGS (6)
  1. STAPHYLEX [FLUCLOXACILLIN SODIUM] [Suspect]
     Active Substance: FLUCLOXACILLIN SODIUM
     Indication: ABSCESS LIMB
     Dosage: UNK
     Route: 065
  2. EXTAVIA [Suspect]
     Active Substance: INTERFERON BETA-1B
     Dosage: 250 OT, QOD
     Route: 058
     Dates: start: 20091008, end: 20190611
  3. EXTAVIA [Suspect]
     Active Substance: INTERFERON BETA-1B
     Indication: MULTIPLE SCLEROSIS
     Dosage: 250 OT, QOD
     Route: 058
     Dates: start: 20091008, end: 20190611
  4. CLINDAMYCIN PHOSPHATE. [Suspect]
     Active Substance: CLINDAMYCIN PHOSPHATE
     Indication: ABSCESS LIMB
     Dosage: 600 MG, 3X/DAY (TID)
     Route: 042
  5. AMLODIPIN DEXCEL [Concomitant]
     Active Substance: AMLODIPINE MALEATE
     Indication: HYPERTENSION
     Dosage: 5 MG, QD
     Route: 065
  6. NEURALGIN [Concomitant]
     Dosage: 684 MG, QD
     Route: 065

REACTIONS (16)
  - Swelling [Unknown]
  - Hypersensitivity [Unknown]
  - Multiple sclerosis relapse [Unknown]
  - Injection site discomfort [Recovered/Resolved]
  - Injection site pain [Recovered/Resolved]
  - Nerve injury [Unknown]
  - Drug eruption [Recovering/Resolving]
  - Injection site pustule [Unknown]
  - Inflammation [Unknown]
  - Chills [Recovering/Resolving]
  - Wrong technique in product usage process [Unknown]
  - Pyrexia [Recovering/Resolving]
  - Abscess limb [Recovering/Resolving]
  - Melanocytic naevus [Unknown]
  - Dermatitis [Unknown]
  - Application site burn [Unknown]

NARRATIVE: CASE EVENT DATE: 20190322
